FAERS Safety Report 14194531 (Version 1)
Quarter: 2017Q4

REPORT INFORMATION
  Report Type: Spontaneous
  Country: DO (occurrence: DO)
  Receive Date: 20171116
  Receipt Date: 20171116
  Transmission Date: 20180321
  Serious: Yes (Other)
  Sender: FDA-Public Use
  Company Number: DO-MERCK KGAA-2034257

PATIENT
  Sex: Female

DRUGS (1)
  1. NOVOTHYROX [Suspect]
     Active Substance: LEVOTHYROXINE SODIUM
     Indication: GOITRE
     Dates: start: 2000

REACTIONS (10)
  - Depression [None]
  - Cough [None]
  - Hyperhidrosis [None]
  - Pulmonary congestion [None]
  - Arrhythmia [None]
  - Cardiomegaly [None]
  - Insomnia [None]
  - Asthmatic crisis [None]
  - Fatigue [None]
  - Amenorrhoea [None]
